FAERS Safety Report 5194652-9 (Version None)
Quarter: 2006Q4

REPORT INFORMATION
  Report Type: 
  Country: None (occurrence: None)
  Receive Date: 20061226
  Receipt Date: 20061226
  Transmission Date: 20070319
  Serious: No
  Sender: FDA-Public Use
  Company Number: None

PATIENT
  Sex: Male
  Weight: 97.977 kg

DRUGS (1)
  1. LITHIUM CARBONATE [Suspect]
     Indication: BIPOLAR I DISORDER
     Dosage: 10 MG 3 TIMES A DAY
     Dates: start: 19860101, end: 20050101

REACTIONS (2)
  - BIPOLAR I DISORDER [None]
  - CONDITION AGGRAVATED [None]
